FAERS Safety Report 12468047 (Version 3)
Quarter: 2016Q3

REPORT INFORMATION
  Report Type: Report from Study
  Country: US (occurrence: US)
  Receive Date: 20160615
  Receipt Date: 20160909
  Transmission Date: 20161109
  Serious: Yes (Other)
  Sender: FDA-Public Use
  Company Number: US-ELI_LILLY_AND_COMPANY-US201606000154

PATIENT
  Sex: Female
  Weight: 59.41 kg

DRUGS (8)
  1. OLANZAPINE. [Suspect]
     Active Substance: OLANZAPINE
     Dosage: 15 MG, QD
     Route: 048
  2. KLONOPIN [Concomitant]
     Active Substance: CLONAZEPAM
     Indication: PRODUCT USED FOR UNKNOWN INDICATION
     Dosage: UNK, UNKNOWN
     Route: 065
  3. NAC                                /00082801/ [Concomitant]
     Dosage: UNK, UNKNOWN
     Route: 065
  4. LEVOTHROID [Concomitant]
     Active Substance: LEVOTHYROXINE SODIUM
     Dosage: UNK, UNKNOWN
     Route: 065
  5. BIOTIN [Concomitant]
     Active Substance: BIOTIN
     Dosage: UNK, UNKNOWN
     Route: 065
  6. OLANZAPINE. [Suspect]
     Active Substance: OLANZAPINE
     Indication: BIPOLAR DISORDER
     Dosage: 20 MG, EACH EVENING
     Route: 048
     Dates: start: 20070713
  7. OLANZAPINE. [Suspect]
     Active Substance: OLANZAPINE
     Dosage: 20 MG, QD
     Route: 048
  8. METFORMINE [Concomitant]
     Active Substance: METFORMIN HYDROCHLORIDE
     Dosage: UNK, UNKNOWN
     Route: 065

REACTIONS (8)
  - Oromandibular dystonia [Unknown]
  - Affect lability [Unknown]
  - Protrusion tongue [Unknown]
  - Swollen tongue [Unknown]
  - Tremor [Unknown]
  - Mastication disorder [Unknown]
  - Malocclusion [Unknown]
  - Dysarthria [Unknown]
